FAERS Safety Report 16577978 (Version 1)
Quarter: 2019Q3

REPORT INFORMATION
  Report Type: Spontaneous
  Country: US (occurrence: US)
  Receive Date: 20190716
  Receipt Date: 20190716
  Transmission Date: 20191004
  Serious: No
  Sender: FDA-Public Use
  Company Number: US-BAYER-2019-132786

PATIENT
  Age: 90 Year
  Sex: Female
  Weight: 79 kg

DRUGS (3)
  1. MIRALAX [Suspect]
     Active Substance: POLYETHYLENE GLYCOL 3350
     Indication: COLITIS ISCHAEMIC
     Dosage: 1 DF, ALMOST EVERYDAY
     Route: 048
     Dates: start: 201906, end: 20190714
  2. MIRALAX [Suspect]
     Active Substance: POLYETHYLENE GLYCOL 3350
     Indication: COLITIS ISCHAEMIC
     Dosage: 1 ALMOST EVERYDAY
     Dates: start: 201802
  3. COLACE [Concomitant]
     Active Substance: DOCUSATE SODIUM

REACTIONS (3)
  - Product use in unapproved indication [None]
  - Drug ineffective for unapproved indication [Unknown]
  - Off label use [Unknown]

NARRATIVE: CASE EVENT DATE: 201802
